FAERS Safety Report 5263367-0 (Version None)
Quarter: 2007Q1

REPORT INFORMATION
  Report Type: 
  Country: None (occurrence: None)
  Receive Date: 20070313
  Receipt Date: 20070305
  Transmission Date: 20070707
  Serious: No
  Sender: FDA-Public Use
  Company Number: SE-ELI_LILLY_AND_COMPANY-SE200703001119

PATIENT
  Age: 42 Year
  Sex: Female

DRUGS (7)
  1. ZYPREXA [Suspect]
     Indication: BIPOLAR I DISORDER
     Dosage: 20 MG, EACH EVENING
     Dates: start: 20060101
  2. OMEPRAZOLE [Concomitant]
     Dosage: 20 MG, DAILY (1/D)
     Dates: start: 20061106
  3. ZOLPIDEM TARTRATE [Concomitant]
     Indication: INSOMNIA
     Dosage: 10 MG, DAILY (1/D)
  4. IMOVANE [Concomitant]
     Indication: INSOMNIA
  5. CIPRALEX [Concomitant]
     Dosage: 30 MG, UNK
     Dates: start: 20060901
  6. CIPRALEX [Concomitant]
     Dosage: 35 MG, UNK
     Dates: start: 20061001
  7. CIPRALEX [Concomitant]
     Dosage: 40 MG, UNK
     Dates: start: 20061127

REACTIONS (1)
  - ANAEMIA [None]
